FAERS Safety Report 5333331-1 (Version None)
Quarter: 2007Q2

REPORT INFORMATION
  Report Type: 
  Country: None (occurrence: None)
  Receive Date: 20070524
  Receipt Date: 20070515
  Transmission Date: 20071010
  Serious: Yes (Other)
  Sender: FDA-Public Use
  Company Number: US-ELI_LILLY_AND_COMPANY-US200705004150

PATIENT
  Sex: Female

DRUGS (2)
  1. FORTEO [Suspect]
     Dosage: UNK, UNK
     Dates: start: 20060101, end: 20061201
  2. FORTEO [Suspect]
     Dates: start: 20070504

REACTIONS (2)
  - BENIGN NEOPLASM OF EYELID [None]
  - MALIGNANT NEOPLASM OF EYELID [None]
